FAERS Safety Report 20081304 (Version 1)
Quarter: 2021Q4

REPORT INFORMATION
  Report Type: Spontaneous
  Country: US (occurrence: None)
  Receive Date: 20211117
  Receipt Date: 20211117
  Transmission Date: 20220304
  Serious: Yes (Disabling, Other)
  Sender: FDA-Public Use
  Company Number: None

PATIENT
  Age: 79 Year
  Sex: Female
  Weight: 45.36 kg

DRUGS (1)
  1. HYDROCORTISONE\NEOMYCIN SULFATE\POLYMYXIN B SULFATE [Suspect]
     Active Substance: HYDROCORTISONE\NEOMYCIN SULFATE\POLYMYXIN B SULFATE
     Indication: Ear infection
     Dosage: FREQUENCY : 4 TIMES A DAY;?
     Dates: start: 20211103, end: 20211105

REACTIONS (1)
  - Deafness unilateral [None]

NARRATIVE: CASE EVENT DATE: 20211105
